FAERS Safety Report 7710714-3 (Version None)
Quarter: 2011Q3

REPORT INFORMATION
  Report Type: 
  Country: None (occurrence: None)
  Receive Date: 20110825
  Receipt Date: 20110823
  Transmission Date: 20111222
  Serious: Yes (Other)
  Sender: FDA-Public Use
  Company Number: US-AMGEN-USASP2011038959

PATIENT
  Sex: Female

DRUGS (3)
  1. NPLATE [Suspect]
     Indication: IDIOPATHIC THROMBOCYTOPENIC PURPURA
     Dosage: 10 A?G/KG, UNK
     Dates: start: 20100811
  2. RITUXIMAB [Concomitant]
     Dosage: UNK
     Dates: start: 20100528
  3. AZATHIOPRINE [Concomitant]

REACTIONS (2)
  - THROMBOCYTOPENIA [None]
  - THERAPEUTIC RESPONSE DECREASED [None]
